FAERS Safety Report 8930045 (Version 1)
Quarter: 2012Q4

REPORT INFORMATION
  Report Type: 
  Country: FR (occurrence: FR)
  Receive Date: 20121128
  Receipt Date: 20121128
  Transmission Date: 20130627
  Serious: Yes (Other)
  Sender: FDA-Public Use
  Company Number: FR-009507513-1211FRA010328

PATIENT
  Sex: Male

DRUGS (2)
  1. ISENTRESS [Suspect]
     Indication: HIV INFECTION
     Dosage: 400 mg, bid
     Route: 048
     Dates: start: 20080911, end: 20120716
  2. TRUVADA [Suspect]
     Indication: HIV INFECTION
     Dosage: 200 mg-245 mg
     Route: 048
     Dates: start: 20070402

REACTIONS (1)
  - Weight increased [Not Recovered/Not Resolved]
